FAERS Safety Report 5263125-7 (Version None)
Quarter: 2007Q1

REPORT INFORMATION
  Report Type: 
  Country: None (occurrence: None)
  Receive Date: 20070312
  Receipt Date: 20070228
  Transmission Date: 20070707
  Serious: Yes (Other)
  Sender: FDA-Public Use
  Company Number: GB-PFIZER INC-2007011447

PATIENT
  Age: 47 Year
  Sex: Male
  Weight: 61 kg

DRUGS (1)
  1. CHAMPIX [Suspect]
     Indication: SMOKING CESSATION THERAPY
     Route: 048

REACTIONS (4)
  - ABDOMINAL PAIN [None]
  - DIVERTICULUM [None]
  - HAEMATOCHEZIA [None]
  - VOMITING [None]
